FAERS Safety Report 6490544-3 (Version None)
Quarter: 2009Q4

REPORT INFORMATION
  Report Type: 
  Country: None (occurrence: None)
  Receive Date: 20091211
  Receipt Date: 20091201
  Transmission Date: 20100525
  Serious: Yes (Hospitalization)
  Sender: FDA-Public Use
  Company Number: DE-PFIZER INC-2009304615

PATIENT
  Age: 70 Year
  Sex: Female
  Weight: 68 kg

DRUGS (3)
  1. SUNITINIB MALATE [Suspect]
     Indication: ACUTE MYELOID LEUKAEMIA
     Dosage: 25 MG, 1X/DAY
     Route: 048
     Dates: start: 20091127, end: 20091202
  2. CYTARABINE [Suspect]
     Dosage: 179 MG, 1X/DAY
     Route: 042
     Dates: start: 20091126, end: 20091202
  3. DAUNORUBICIN HCL [Suspect]
     Dosage: 107.4 MG, 1X/DAY
     Route: 042
     Dates: start: 20091126, end: 20091128

REACTIONS (4)
  - ENTEROCOLITIS [None]
  - HYPERBILIRUBINAEMIA [None]
  - NEUTROPENIA [None]
  - PYREXIA [None]
